FAERS Safety Report 12372158 (Version 2)
Quarter: 2016Q4

REPORT INFORMATION
  Report Type: Spontaneous
  Country: JP (occurrence: JP)
  Receive Date: 20160516
  Receipt Date: 20161214
  Transmission Date: 20170207
  Serious: Yes (Death, Hospitalization, Other)
  Sender: FDA-Public Use
  Company Number: JP-OTSUKA-2015_015846

PATIENT
  Age: 71 Year
  Sex: Male
  Weight: 68.4 kg

DRUGS (10)
  1. MUCOSTA TABLETS 100MG [Concomitant]
     Indication: PRODUCT USED FOR UNKNOWN INDICATION
     Dosage: 300 MG, DAILY DOSE
     Route: 048
     Dates: start: 2014, end: 20150520
  2. HEPAN ED [Concomitant]
     Active Substance: AMINO ACIDS\VITAMINS
     Indication: PRODUCT USED FOR UNKNOWN INDICATION
     Dosage: 180 G, DAILY DOSE
     Route: 048
     Dates: start: 20140904, end: 20150520
  3. AVAPRO [Concomitant]
     Active Substance: IRBESARTAN
     Indication: PRODUCT USED FOR UNKNOWN INDICATION
     Dosage: 100 MG, DAILY DOSE
     Route: 048
     Dates: start: 2014, end: 20150520
  4. ISOLEUCINE W/LEUCINE/VALINE [Concomitant]
     Active Substance: ISOLEUCINE\LEUCINE\VALINE
     Indication: PRODUCT USED FOR UNKNOWN INDICATION
     Dosage: 12.45 G, DAILY DOSE
     Route: 048
     Dates: start: 20140723, end: 20150520
  5. SAMSCA [Suspect]
     Active Substance: TOLVAPTAN
     Indication: ASCITES
     Dosage: 7.5 MG, DAILY DOSE
     Route: 048
     Dates: start: 20140930, end: 20141009
  6. FUROSEMIDE. [Concomitant]
     Active Substance: FUROSEMIDE
     Indication: OEDEMA DUE TO HEPATIC DISEASE
     Dosage: UNK
     Route: 065
  7. SPIRONOLACTONE. [Concomitant]
     Active Substance: SPIRONOLACTONE
     Indication: OEDEMA DUE TO HEPATIC DISEASE
     Dosage: 25 MG, DAILY DOSE
     Route: 048
     Dates: start: 20140709, end: 20150520
  8. AMLODIPINE [Concomitant]
     Active Substance: AMLODIPINE BESYLATE
     Indication: PRODUCT USED FOR UNKNOWN INDICATION
     Dosage: 5 MG, DAILY DOSE
     Route: 048
     Dates: start: 2014, end: 20150520
  9. PARIET [Concomitant]
     Active Substance: RABEPRAZOLE SODIUM
     Indication: PRODUCT USED FOR UNKNOWN INDICATION
     Dosage: 10 MG, DAILY DOSE
     Route: 048
     Dates: start: 20140918, end: 20150520
  10. SAMSCA [Suspect]
     Active Substance: TOLVAPTAN
     Indication: OEDEMA DUE TO HEPATIC DISEASE
     Dosage: 3.75 MG, DAILY DOSE
     Route: 048
     Dates: start: 20140925, end: 20140929

REACTIONS (2)
  - Hepatocellular carcinoma [Fatal]
  - Hypernatraemia [Recovered/Resolved]

NARRATIVE: CASE EVENT DATE: 20141010
